FAERS Safety Report 9152526 (Version 1)
Quarter: 2013Q1

REPORT INFORMATION
  Report Type: Spontaneous
  Country: US (occurrence: US)
  Receive Date: 20130308
  Receipt Date: 20130308
  Transmission Date: 20140127
  Serious: Yes (Death, Other)
  Sender: FDA-Public Use
  Company Number: US-009507513-1303USA001838

PATIENT
  Age: 44 Year
  Sex: Female

DRUGS (16)
  1. SINGULAIR [Suspect]
  2. AMPHETAMINE (+) DEXTROAMPHETAMINE [Concomitant]
  3. ZANAFLEX [Concomitant]
  4. BACLOFEN [Concomitant]
  5. GABAPENTIN [Concomitant]
  6. CITALOPRAM HYDROBROMIDE [Concomitant]
  7. DIAZEPAM [Concomitant]
  8. GILENYA [Concomitant]
  9. TYSABRI [Concomitant]
  10. NEURONTIN [Concomitant]
  11. ACETAMINOPHEN (+) HYDROCODONE BITARTRATE [Concomitant]
  12. [THERAPY UNSPECIFIED] [Concomitant]
  13. LOVENOX [Concomitant]
  14. PREVACID [Concomitant]
  15. ADDERALL TABLETS [Concomitant]
  16. CYANOCOBALAMIN [Concomitant]

REACTIONS (7)
  - Multiple sclerosis [Fatal]
  - Pneumonia [Fatal]
  - Fall [Fatal]
  - Drug ineffective [Fatal]
  - Cachexia [Fatal]
  - Blood pressure decreased [Fatal]
  - Asthenia [Fatal]
